FAERS Safety Report 6341620-7 (Version None)
Quarter: 2009Q3

REPORT INFORMATION
  Report Type: 
  Country: None (occurrence: None)
  Receive Date: 20090902
  Receipt Date: 20090902
  Transmission Date: 20100115
  Serious: Yes (Hospitalization)
  Sender: FDA-Public Use
  Company Number: None

PATIENT
  Age: 66 Year
  Sex: Female
  Weight: 89.3586 kg

DRUGS (21)
  1. CARBOPLATIN [Suspect]
     Indication: NON-SMALL CELL LUNG CANCER
     Dosage: AUC = 3, IV Q 14D
     Route: 042
     Dates: start: 20090727
  2. CARBOPLATIN [Suspect]
     Indication: NON-SMALL CELL LUNG CANCER
     Dosage: AUC = 3, IV Q 14D
     Route: 042
     Dates: start: 20090810
  3. CARBOPLATIN [Suspect]
     Indication: NON-SMALL CELL LUNG CANCER
     Dosage: AUC = 3, IV Q 14D
     Route: 042
     Dates: start: 20090824
  4. GEMCITABINE [Suspect]
     Indication: NON-SMALL CELL LUNG CANCER
     Dosage: 2000 MG/M2 IV Q 14D
     Route: 042
     Dates: start: 20090727
  5. GEMCITABINE [Suspect]
     Indication: NON-SMALL CELL LUNG CANCER
     Dosage: 2000 MG/M2 IV Q 14D
     Route: 042
     Dates: start: 20090810
  6. GEMCITABINE [Suspect]
     Indication: NON-SMALL CELL LUNG CANCER
     Dosage: 2000 MG/M2 IV Q 14D
     Route: 042
     Dates: start: 20090824
  7. HYZAAR [Concomitant]
  8. PREVACID [Concomitant]
  9. AMLODIPINE [Concomitant]
  10. VITAMIN D [Concomitant]
  11. GENTEAL [Concomitant]
  12. PATANOL [Concomitant]
  13. OXYCODONE [Concomitant]
  14. DOCUSATE [Concomitant]
  15. SENNOKOT [Concomitant]
  16. METAMUCIL [Concomitant]
  17. DECADRON [Concomitant]
  18. EMEND [Concomitant]
  19. COMPAZINE [Concomitant]
  20. ATIVAN [Concomitant]
  21. LOPRESSOR [Concomitant]

REACTIONS (2)
  - BLOOD PRESSURE SYSTOLIC INCREASED [None]
  - DYSPNOEA [None]
